FAERS Safety Report 12732649 (Version 1)
Quarter: 2016Q3

REPORT INFORMATION
  Report Type: Spontaneous
  Country: AU (occurrence: AU)
  Receive Date: 20160912
  Receipt Date: 20160912
  Transmission Date: 20161109
  Serious: Yes (Other)
  Sender: FDA-Public Use
  Company Number: AU-BAXALTA-2016BLT006563

PATIENT
  Age: 15 Month
  Sex: Male

DRUGS (9)
  1. ADVATE [Suspect]
     Active Substance: ANTIHEMOPHILIC FACTOR, HUMAN RECOMBINANT
     Dosage: 100U/KG 2ND DAILY
     Route: 042
     Dates: start: 201506
  2. ADVATE [Suspect]
     Active Substance: ANTIHEMOPHILIC FACTOR, HUMAN RECOMBINANT
     Dosage: 100 U/KG/DAY
     Route: 042
     Dates: start: 201508
  3. ADVATE [Suspect]
     Active Substance: ANTIHEMOPHILIC FACTOR, HUMAN RECOMBINANT
     Dosage: 100 U/KG DAILY
     Dates: start: 201606
  4. ADVATE [Suspect]
     Active Substance: ANTIHEMOPHILIC FACTOR, HUMAN RECOMBINANT
     Indication: FACTOR VIII DEFICIENCY
     Dosage: UNK
     Route: 065
     Dates: start: 201503
  5. ADVATE [Suspect]
     Active Substance: ANTIHEMOPHILIC FACTOR, HUMAN RECOMBINANT
     Dosage: 100 U/KG DAILY
     Route: 042
     Dates: start: 201507
  6. ADVATE [Suspect]
     Active Substance: ANTIHEMOPHILIC FACTOR, HUMAN RECOMBINANT
     Dosage: 100 U/KG 2ND DAILY
     Route: 042
     Dates: start: 201604
  7. ADVATE [Suspect]
     Active Substance: ANTIHEMOPHILIC FACTOR, HUMAN RECOMBINANT
     Indication: PROPHYLAXIS
     Dosage: UNK
     Route: 042
     Dates: start: 201505
  8. ADVATE [Suspect]
     Active Substance: ANTIHEMOPHILIC FACTOR, HUMAN RECOMBINANT
     Dosage: UNK, 3X A WEEK
     Route: 042
     Dates: start: 201505
  9. ADVATE [Suspect]
     Active Substance: ANTIHEMOPHILIC FACTOR, HUMAN RECOMBINANT
     Dosage: 50 U/KG 2ND DAILY
     Route: 042
     Dates: start: 201505

REACTIONS (4)
  - Haemorrhage [Unknown]
  - Haemarthrosis [Unknown]
  - Factor VIII inhibition [Recovered/Resolved]
  - Tongue haemorrhage [Unknown]

NARRATIVE: CASE EVENT DATE: 201505
